FAERS Safety Report 24428247 (Version 5)
Quarter: 2025Q1

REPORT INFORMATION
  Report Type: Spontaneous
  Country: US (occurrence: US)
  Receive Date: 20241011
  Receipt Date: 20250212
  Transmission Date: 20250408
  Serious: Yes (Other)
  Sender: PFIZER
  Company Number: US-PFIZER INC-PV202400064714

PATIENT
  Age: 76 Year
  Sex: Female

DRUGS (4)
  1. IBRANCE [Suspect]
     Active Substance: PALBOCICLIB
     Indication: Breast cancer female
  2. IBRANCE [Suspect]
     Active Substance: PALBOCICLIB
     Route: 048
  3. IBRANCE [Suspect]
     Active Substance: PALBOCICLIB
     Route: 048
     Dates: start: 20240911, end: 20241008
  4. IBRANCE [Suspect]
     Active Substance: PALBOCICLIB

REACTIONS (7)
  - Neuropathy peripheral [Unknown]
  - Blister [Unknown]
  - Neoplasm progression [Unknown]
  - Pain [Unknown]
  - Illness [Unknown]
  - Off label use [Unknown]
  - Product use issue [Unknown]
